FAERS Safety Report 8577026-X (Version None)
Quarter: 2012Q3

REPORT INFORMATION
  Report Type: 
  Country: None (occurrence: None)
  Receive Date: 20120807
  Receipt Date: 20120727
  Transmission Date: 20120928
  Serious: Yes (Hospitalization)
  Sender: FDA-Public Use
  Company Number: US-BAYER-2012-076581

PATIENT
  Age: 36 Year
  Sex: Female
  Weight: 82 kg

DRUGS (11)
  1. NEURONTIN [Concomitant]
     Dosage: 300 MG,TID
     Route: 048
  2. PROTONIX [Concomitant]
  3. SYNTHROID [Concomitant]
     Dosage: 100 MCG DAILY
     Route: 048
  4. ZOLPIDEM [Concomitant]
  5. BEYAZ [Suspect]
  6. ZOFRAN [Concomitant]
  7. DILAUDID [Concomitant]
  8. YAZ [Suspect]
  9. YASMIN [Suspect]
  10. HYDROCODONE W/IBUPROFEN [Concomitant]
     Dosage: 7.5-200
     Route: 048
  11. HYDROCHLOROTHIAZIDE [Concomitant]
     Dosage: 25 MG DAILY, UNK
     Route: 048

REACTIONS (3)
  - DEEP VEIN THROMBOSIS [None]
  - MYOCARDIAL INFARCTION [None]
  - PULMONARY EMBOLISM [None]
